FAERS Safety Report 10571749 (Version 2)
Quarter: 2014Q4

REPORT INFORMATION
  Report Type: Spontaneous
  Country: US (occurrence: US)
  Receive Date: 20141107
  Receipt Date: 20141125
  Transmission Date: 20150529
  Serious: Yes (Hospitalization)
  Sender: FDA-Public Use
  Company Number: US-JNJFOC-20141100636

PATIENT
  Age: 60 Year
  Sex: Male
  Weight: 77.11 kg

DRUGS (2)
  1. OLYSIO [Suspect]
     Active Substance: SIMEPREVIR
     Indication: HEPATITIS C
     Route: 048
     Dates: start: 20140502, end: 201406
  2. SOVALDI [Suspect]
     Active Substance: SOFOSBUVIR
     Indication: HEPATITIS C
     Route: 065
     Dates: start: 20140502

REACTIONS (12)
  - Blood glucose increased [Not Recovered/Not Resolved]
  - Blood bilirubin increased [Unknown]
  - Aspartate aminotransferase increased [Unknown]
  - Off label use [Recovered/Resolved]
  - Hepatic failure [Unknown]
  - Renal failure [Unknown]
  - Malaise [Unknown]
  - Swelling [Unknown]
  - Jaundice [Unknown]
  - Diabetes mellitus [Not Recovered/Not Resolved]
  - Hepatic encephalopathy [Unknown]
  - Blood test abnormal [Unknown]

NARRATIVE: CASE EVENT DATE: 2014
